FAERS Safety Report 17591047 (Version 2)
Quarter: 2022Q2

REPORT INFORMATION
  Report Type: Report from Study
  Country: US (occurrence: US)
  Receive Date: 20200327
  Receipt Date: 20220513
  Transmission Date: 20220721
  Serious: No
  Sender: FDA-Public Use
  Company Number: CID000000000003379

PATIENT
  Sex: Male

DRUGS (2)
  1. FENTANYL CITRATE [Suspect]
     Active Substance: FENTANYL CITRATE
     Indication: Pain
     Dosage: 200 MCG
     Route: 048
     Dates: start: 202002
  2. FENTANYL CITRATE [Suspect]
     Active Substance: FENTANYL CITRATE
     Dosage: 400 MCG
     Route: 048
     Dates: start: 202002

REACTIONS (3)
  - Drug ineffective [Unknown]
  - Product solubility abnormal [Unknown]
  - Product physical issue [Unknown]
